FAERS Safety Report 8615649-X (Version None)
Quarter: 2012Q3

REPORT INFORMATION
  Report Type: 
  Country: None (occurrence: None)
  Receive Date: 20120823
  Receipt Date: 20120813
  Transmission Date: 20120928
  Serious: Yes (Death, Hospitalization)
  Sender: FDA-Public Use
  Company Number: FR-BRISTOL-MYERS SQUIBB COMPANY-16716532

PATIENT
  Age: 54 Year
  Sex: Male

DRUGS (10)
  1. NORVIR [Suspect]
     Route: 048
     Dates: start: 20110601
  2. SERTRALINE HYDROCHLORIDE [Concomitant]
  3. CLOMIPRAMINE HCL [Concomitant]
  4. PREZISTA [Suspect]
     Route: 048
     Dates: end: 20110601
  5. ISENTRESS [Suspect]
     Dosage: FILM COATED
     Route: 048
     Dates: start: 20110527, end: 20110601
  6. ASPIRIN [Concomitant]
  7. VIDEX [Interacting]
     Indication: HIV INFECTION
     Route: 048
     Dates: end: 20110527
  8. VIREAD [Interacting]
     Indication: HIV INFECTION
     Route: 048
     Dates: end: 20110527
  9. CRESTOR [Concomitant]
  10. OMEPRAZOLE [Concomitant]

REACTIONS (3)
  - FANCONI SYNDROME [None]
  - MITOCHONDRIAL CYTOPATHY [None]
  - DRUG INTERACTION [None]
